FAERS Safety Report 19720372 (Version 2)
Quarter: 2021Q3

REPORT INFORMATION
  Report Type: Spontaneous
  Country: US (occurrence: US)
  Receive Date: 20210818
  Receipt Date: 20210826
  Transmission Date: 20211014
  Serious: Yes (Other)
  Sender: FDA-Public Use
  Company Number: US-TEVA-2021-US-1942367

PATIENT
  Age: 50 Year
  Sex: Male

DRUGS (3)
  1. TRAMADOL. [Suspect]
     Active Substance: TRAMADOL
     Indication: MERALGIA PARAESTHETICA
     Route: 065
  2. COUMADIN [Concomitant]
     Active Substance: WARFARIN SODIUM
     Indication: DEEP VEIN THROMBOSIS
     Route: 065
  3. GABAPENTIN. [Suspect]
     Active Substance: GABAPENTIN
     Indication: MERALGIA PARAESTHETICA
     Dosage: INITIAL DOSE UNKNOWN; LATER THE DOSE WAS INCREASED
     Route: 065

REACTIONS (2)
  - Sedation [Unknown]
  - Drug ineffective [Unknown]
